FAERS Safety Report 14341338 (Version 1)
Quarter: 2018Q1

REPORT INFORMATION
  Report Type: Spontaneous
  Country: ES (occurrence: ES)
  Receive Date: 20180102
  Receipt Date: 20180102
  Transmission Date: 20180509
  Serious: Yes (Hospitalization)
  Sender: FDA-Public Use
  Company Number: ES-TEVA-2017-ES-837621

PATIENT
  Age: 90 Year
  Sex: Male

DRUGS (1)
  1. CIPROFLOXACINO 500 MG COMPRIMIDO [Suspect]
     Active Substance: CIPROFLOXACIN
     Indication: URINARY TRACT INFECTION
     Route: 048
     Dates: start: 20151229, end: 20161105

REACTIONS (2)
  - Diarrhoea [Recovered/Resolved]
  - Dysbacteriosis [Recovered/Resolved]

NARRATIVE: CASE EVENT DATE: 20151229
